FAERS Safety Report 8987895 (Version 1)
Quarter: 2012Q4

REPORT INFORMATION
  Report Type: 
  Country: GB (occurrence: GB)
  Receive Date: 20121227
  Receipt Date: 20121227
  Transmission Date: 20130627
  Serious: Yes (Other)
  Sender: FDA-Public Use
  Company Number: GB-GLAXOSMITHKLINE-B0854448A

PATIENT
  Sex: Male

DRUGS (7)
  1. REQUIP XL [Suspect]
     Indication: PARKINSON^S DISEASE
     Dosage: 14MG Unknown
     Route: 065
     Dates: end: 201212
  2. STALEVO [Concomitant]
  3. SELEGILINE [Concomitant]
  4. OMEPRAZOLE [Concomitant]
  5. TRAMADOL [Concomitant]
  6. ALENDRONIC ACID [Concomitant]
  7. CALCEOS [Concomitant]

REACTIONS (9)
  - Suicide attempt [Recovering/Resolving]
  - Road traffic accident [Unknown]
  - Mood altered [Recovering/Resolving]
  - Aggression [Recovering/Resolving]
  - Gambling [Recovering/Resolving]
  - Compulsive shopping [Recovering/Resolving]
  - Compulsive sexual behaviour [Recovering/Resolving]
  - Antisocial behaviour [Recovering/Resolving]
  - Shoplifting [Recovering/Resolving]
